FAERS Safety Report 13587798 (Version 3)
Quarter: 2022Q1

REPORT INFORMATION
  Report Type: Spontaneous
  Country: DE (occurrence: DE)
  Receive Date: 20170527
  Receipt Date: 20220106
  Transmission Date: 20220423
  Serious: Yes (Hospitalization, Other)
  Sender: FDA-Public Use
  Company Number: None

PATIENT
  Age: 12 Month
  Sex: Male
  Weight: 2 kg

DRUGS (3)
  1. CARBAMAZEPINE [Suspect]
     Active Substance: CARBAMAZEPINE
     Indication: Epilepsy
     Dosage: 1000 [MG/D] QD (500 MG, BID)
     Route: 064
     Dates: start: 20160508, end: 20170117
  2. LEVETIRACETAM [Suspect]
     Active Substance: LEVETIRACETAM
     Indication: Epilepsy
     Dosage: 1000 [MG/D] QD (500 MG, BID)
     Route: 064
     Dates: start: 20160508, end: 20170117
  3. ZONEGRAN [Suspect]
     Active Substance: ZONISAMIDE
     Indication: Epilepsy
     Dosage: 200 [MG/D], QD
     Route: 064
     Dates: start: 20160508, end: 20170117

REACTIONS (10)
  - Respiratory disorder neonatal [Recovered/Resolved]
  - Premature baby [Recovered/Resolved]
  - Neonatal pneumonia [Recovered/Resolved]
  - Tachyarrhythmia [Not Recovered/Not Resolved]
  - Neonatal hypotension [Recovered/Resolved]
  - Pulmonary hypertension [Recovered/Resolved]
  - Disseminated intravascular coagulation [Recovered/Resolved]
  - Small for dates baby [Recovered/Resolved]
  - Foetal exposure during pregnancy [Recovered/Resolved]
  - Low birth weight baby [Unknown]

NARRATIVE: CASE EVENT DATE: 20160101
